FAERS Safety Report 8172136-3 (Version None)
Quarter: 2012Q1

REPORT INFORMATION
  Report Type: 
  Country: None (occurrence: None)
  Receive Date: 20120228
  Receipt Date: 20120223
  Transmission Date: 20120608
  Serious: Yes (Other)
  Sender: FDA-Public Use
  Company Number: US-MERCK-1202USA03900

PATIENT
  Sex: Female

DRUGS (4)
  1. BONIVA [Suspect]
     Route: 065
     Dates: start: 20100101, end: 20110201
  2. FOSAMAX [Suspect]
     Route: 048
     Dates: start: 20040101, end: 20071101
  3. FOSAMAX [Suspect]
     Route: 048
     Dates: start: 20070101, end: 20100301
  4. FOSAMAX [Suspect]
     Route: 048
     Dates: start: 20110101, end: 20110801

REACTIONS (3)
  - LOW TURNOVER OSTEOPATHY [None]
  - FEMUR FRACTURE [None]
  - FOOT FRACTURE [None]
